FAERS Safety Report 6141466-9 (Version None)
Quarter: 2009Q2

REPORT INFORMATION
  Report Type: 
  Country: None (occurrence: None)
  Receive Date: 20090402
  Receipt Date: 20090325
  Transmission Date: 20091009
  Serious: Yes (Other)
  Sender: FDA-Public Use
  Company Number: PHHY2009CA11557

PATIENT
  Sex: Female

DRUGS (1)
  1. EXJADE [Suspect]
     Indication: MYELODYSPLASTIC SYNDROME
     Dosage: 2500 MG
     Route: 048
     Dates: start: 20090201, end: 20090324

REACTIONS (2)
  - DEAFNESS UNILATERAL [None]
  - VISION BLURRED [None]
